FAERS Safety Report 4724494-7 (Version None)
Quarter: 2005Q3

REPORT INFORMATION
  Report Type: 
  Country: None (occurrence: None)
  Receive Date: 20050720
  Receipt Date: 20050720
  Transmission Date: 20060218
  Serious: Yes (Hospitalization)
  Sender: FDA-Public Use
  Company Number: None

PATIENT
  Age: 45 Year
  Sex: Female
  Weight: 54.4316 kg

DRUGS (4)
  1. FENTANYL [Suspect]
     Indication: HEADACHE
     Dosage: 50 MG/H EVERY 48 HRS - 061
  2. FENTANYL [Suspect]
     Indication: NECK PAIN
     Dosage: 50 MG/H EVERY 48 HRS - 061
  3. FENTANYL [Suspect]
     Indication: HEADACHE
     Dosage: 100 MG/H EVERY 48 HRS - 061
  4. FENTANYL [Suspect]
     Indication: NECK PAIN
     Dosage: 100 MG/H EVERY 48 HRS - 061

REACTIONS (7)
  - DRUG INEFFECTIVE [None]
  - DRUG LEVEL CHANGED [None]
  - DRUG WITHDRAWAL SYNDROME [None]
  - MENTAL IMPAIRMENT [None]
  - MUSCLE SPASMS [None]
  - THERAPEUTIC RESPONSE UNEXPECTED WITH DRUG SUBSTITUTION [None]
  - VOMITING [None]
